FAERS Safety Report 17740007 (Version 1)
Quarter: 2020Q2

REPORT INFORMATION
  Report Type: Spontaneous
  Country: ES (occurrence: ES)
  Receive Date: 20200504
  Receipt Date: 20200504
  Transmission Date: 20200714
  Serious: Yes (Hospitalization)
  Sender: FDA-Public Use
  Company Number: ES-ACCORD-180755

PATIENT
  Age: 80 Year
  Sex: Female

DRUGS (1)
  1. METHOTREXATE. [Suspect]
     Active Substance: METHOTREXATE
     Indication: PRODUCT USED FOR UNKNOWN INDICATION
     Dosage: 25 MG SC WEEKLY
     Route: 058
     Dates: start: 20190220, end: 20200207

REACTIONS (2)
  - Venous thrombosis [Recovered/Resolved]
  - Hypereosinophilic syndrome [Recovered/Resolved]

NARRATIVE: CASE EVENT DATE: 20200207
